FAERS Safety Report 5068085-X (Version None)
Quarter: 2006Q3

REPORT INFORMATION
  Report Type: 
  Country: None (occurrence: None)
  Receive Date: 20060731
  Receipt Date: 20060720
  Transmission Date: 20061208
  Serious: Yes (Other)
  Sender: FDA-Public Use
  Company Number: 2006050132

PATIENT
  Age: 89 Year
  Sex: Female
  Weight: 58.0604 kg

DRUGS (14)
  1. CADUET [Suspect]
     Indication: HYPERLIPIDAEMIA
     Dosage: 5/10 MG (1 IN 1 D),
     Dates: start: 20040801
  2. CADUET [Suspect]
     Indication: HYPERTENSION
     Dosage: 5/10 MG (1 IN 1 D),
     Dates: start: 20040801
  3. MAXZIDE [Concomitant]
  4. IBANDRONATE SODIUM (IBANDRONATE SODIUM) [Concomitant]
  5. TOPROL-XL [Concomitant]
  6. ASPIRIN [Concomitant]
  7. CALCIUM (CALCIUM) [Concomitant]
  8. ARICEPT [Concomitant]
  9. CENTRUM SILVER (ASCORBIC ACID, CALCIUM, MINERALS NOS, RETINOL, TOCOPHE [Concomitant]
  10. LUMIGAN [Concomitant]
  11. ZYRTEC [Concomitant]
  12. PREDNISONE TAB [Concomitant]
  13. FLONASE [Concomitant]
  14. LEXAPRO [Concomitant]

REACTIONS (9)
  - ABDOMINAL PAIN UPPER [None]
  - ANAEMIA [None]
  - DEMENTIA ALZHEIMER'S TYPE [None]
  - DEPRESSION [None]
  - FLATULENCE [None]
  - NEOPLASM MALIGNANT [None]
  - SINUS HEADACHE [None]
  - TEMPORAL ARTERITIS [None]
  - WEIGHT DECREASED [None]
